FAERS Safety Report 9261277 (Version 1)
Quarter: 2013Q2

REPORT INFORMATION
  Report Type: Spontaneous
  Country: US (occurrence: US)
  Receive Date: 20130429
  Receipt Date: 20130429
  Transmission Date: 20140414
  Serious: Yes (Death, Hospitalization)
  Sender: FDA-Public Use
  Company Number: US-GLAXOSMITHKLINE-A0993161A

PATIENT
  Age: 47 Year
  Sex: Male

DRUGS (1)
  1. FLOLAN [Suspect]
     Indication: COR PULMONALE CHRONIC
     Dosage: 14NGKM CONTINUOUS
     Route: 042
     Dates: start: 20120616

REACTIONS (4)
  - Death [Fatal]
  - Paracentesis [Not Recovered/Not Resolved]
  - Decreased appetite [Unknown]
  - Vocal cord disorder [Unknown]
